FAERS Safety Report 17453640 (Version 2)
Quarter: 2022Q2

REPORT INFORMATION
  Report Type: Report from Study
  Country: KR (occurrence: None)
  Receive Date: 20200224
  Receipt Date: 20220505
  Transmission Date: 20220721
  Serious: Yes (Hospitalization)
  Sender: FDA-Public Use
  Company Number: KR-EISAI MEDICAL RESEARCH-EC-2020-070442

PATIENT
  Age: 67 Year
  Sex: Male
  Weight: 59.9 kg

DRUGS (9)
  1. LENVIMA [Suspect]
     Active Substance: LENVATINIB
     Indication: Hepatocellular carcinoma
     Route: 048
     Dates: start: 20191002, end: 20191016
  2. VIREAD [Concomitant]
     Active Substance: TENOFOVIR DISOPROXIL FUMARATE
     Indication: Chronic hepatitis
     Route: 048
     Dates: start: 20191002
  3. LASIX [Concomitant]
     Active Substance: FUROSEMIDE
     Indication: Hypertension
     Route: 048
     Dates: start: 20191002, end: 20191015
  4. ALDACTONE [Concomitant]
     Active Substance: SPIRONOLACTONE
     Indication: Hypertension
     Route: 048
     Dates: start: 20191002, end: 20191015
  5. DUPHALAC [Concomitant]
     Active Substance: LACTULOSE
     Indication: Prophylaxis
     Route: 048
     Dates: start: 20191002, end: 20191015
  6. LIRECTAN GRANULE [Concomitant]
     Indication: Prophylaxis
     Route: 048
     Dates: start: 20191002
  7. ARONAMIN C PLUS [Concomitant]
     Indication: Prophylaxis
     Route: 048
     Dates: start: 20191002
  8. MAGNESIUM OXIDE [Concomitant]
     Active Substance: MAGNESIUM OXIDE
     Indication: Prophylaxis
     Route: 048
     Dates: start: 20191002, end: 20191015
  9. FEROBA-YOU [Concomitant]
     Indication: Iron deficiency anaemia
     Route: 048
     Dates: start: 20191002, end: 20191015

REACTIONS (1)
  - Hepatic failure [Recovered/Resolved]

NARRATIVE: CASE EVENT DATE: 20191016
